FAERS Safety Report 11803470 (Version 1)
Quarter: 2015Q4

REPORT INFORMATION
  Report Type: Spontaneous
  Country: CA (occurrence: CA)
  Receive Date: 20151204
  Receipt Date: 20151204
  Transmission Date: 20160305
  Serious: Yes (Hospitalization)
  Sender: FDA-Public Use
  Company Number: CA-TEVA-613902ACC

PATIENT
  Age: 81 Year
  Sex: Male
  Weight: 82 kg

DRUGS (15)
  1. PANTOPRAZOLE [Concomitant]
     Active Substance: PANTOPRAZOLE SODIUM
  2. ENOXAPARIN [Concomitant]
     Active Substance: ENOXAPARIN
  3. LEVOTHYROXINE. [Concomitant]
     Active Substance: LEVOTHYROXINE
  4. ACETAMINOPHEN. [Concomitant]
     Active Substance: ACETAMINOPHEN
  5. WARFARIN [Concomitant]
     Active Substance: WARFARIN
  6. ACETAMINOPHEN/TRAMADOL [Concomitant]
     Active Substance: ACETAMINOPHEN\TRAMADOL
  7. METFORMIN [Concomitant]
     Active Substance: METFORMIN HYDROCHLORIDE
  8. MORPHINE SULFATE. [Concomitant]
     Active Substance: MORPHINE SULFATE
  9. TAMSULOSIN CR [Concomitant]
     Active Substance: TAMSULOSIN
  10. GABAPENTIN. [Suspect]
     Active Substance: GABAPENTIN
     Indication: PRODUCT USED FOR UNKNOWN INDICATION
     Dosage: 200 MILLIGRAM DAILY;
     Route: 048
  11. METOPROLOL [Concomitant]
     Active Substance: METOPROLOL
  12. ROSUVASTATIN [Concomitant]
     Active Substance: ROSUVASTATIN
  13. RAPAFLO [Concomitant]
     Active Substance: SILODOSIN
  14. CEFTRIAXONE FOR INJECTION USP [Concomitant]
     Route: 030
  15. DOCUSATE SODIUM. [Concomitant]
     Active Substance: DOCUSATE SODIUM

REACTIONS (1)
  - Choreoathetosis [Recovered/Resolved]
